FAERS Safety Report 24565757 (Version 1)
Quarter: 2024Q4

REPORT INFORMATION
  Report Type: Report from Study
  Country: US (occurrence: US)
  Receive Date: 20241030
  Receipt Date: 20241030
  Transmission Date: 20250115
  Serious: Yes (Hospitalization)
  Sender: BIOGEN
  Company Number: US-BIOGEN-2024BI01284166

PATIENT
  Sex: Male

DRUGS (2)
  1. TYSABRI [Suspect]
     Active Substance: NATALIZUMAB
     Indication: Multiple sclerosis
     Route: 050
     Dates: start: 20160301
  2. BOTOX [Suspect]
     Active Substance: ONABOTULINUMTOXINA
     Indication: Urinary incontinence
     Route: 050

REACTIONS (5)
  - Cystitis [Unknown]
  - Irritability [Unknown]
  - Asthenia [Unknown]
  - Headache [Unknown]
  - Urinary incontinence [Unknown]

NARRATIVE: CASE EVENT DATE: 20240101
